FAERS Safety Report 12639358 (Version 37)
Quarter: 2019Q2

REPORT INFORMATION
  Report Type: Spontaneous
  Country: US (occurrence: US)
  Receive Date: 20160810
  Receipt Date: 20190603
  Transmission Date: 20190711
  Serious: Yes (Other)
  Sender: FDA-Public Use
  Company Number: PHEH2016US019856

PATIENT
  Age: 29 Year
  Sex: Female

DRUGS (3)
  1. ZOFRAN [Suspect]
     Active Substance: ONDANSETRON HYDROCHLORIDE
     Indication: PRODUCT USED FOR UNKNOWN INDICATION
     Route: 048
  2. ZOFRAN [Suspect]
     Active Substance: ONDANSETRON HYDROCHLORIDE
     Indication: MORNING SICKNESS
     Route: 042
     Dates: start: 20120609, end: 20121204
  3. ONDANSETRON HYDROCHLORIDE SANDOZ [Suspect]
     Active Substance: ONDANSETRON HYDROCHLORIDE
     Indication: MORNING SICKNESS
     Dosage: 4 MG, QD
     Route: 065
     Dates: start: 20120608

REACTIONS (17)
  - Back pain [Unknown]
  - Anxiety [Unknown]
  - Headache [Unknown]
  - Hepatomegaly [Unknown]
  - Injury [Unknown]
  - Depression [Unknown]
  - Pelvic pain [Unknown]
  - Abdominal pain [Unknown]
  - Breech presentation [Unknown]
  - Bronchitis [Unknown]
  - Product use in unapproved indication [Unknown]
  - Breast tenderness [Unknown]
  - Maternal exposure during pregnancy [Unknown]
  - Palpitations [Unknown]
  - Pyrexia [Unknown]
  - Premature delivery [Unknown]
  - Visual impairment [Unknown]

NARRATIVE: CASE EVENT DATE: 20121204
